FAERS Safety Report 11697354 (Version 1)
Quarter: 2015Q4

REPORT INFORMATION
  Report Type: Spontaneous
  Country: BR (occurrence: BR)
  Receive Date: 20151104
  Receipt Date: 20151104
  Transmission Date: 20160304
  Serious: Yes (Hospitalization)
  Sender: FDA-Public Use
  Company Number: BR-ASTRAZENECA-2015SF06020

PATIENT
  Age: 67 Year
  Sex: Male
  Weight: 105 kg

DRUGS (16)
  1. ATORVASTATIN [Concomitant]
     Active Substance: ATORVASTATIN
  2. LIRAGLUTIDE [Concomitant]
     Active Substance: LIRAGLUTIDE
     Dates: start: 20110928
  3. LANTUS [Concomitant]
     Active Substance: INSULIN GLARGINE
     Dates: start: 20141015
  4. PIOGLITAZONE. [Concomitant]
     Active Substance: PIOGLITAZONE
     Dates: start: 20110928
  5. XENICAL [Concomitant]
     Active Substance: ORLISTAT
  6. BYETTA [Concomitant]
     Active Substance: EXENATIDE
  7. RAMIPRIL. [Concomitant]
     Active Substance: RAMIPRIL
  8. METFORMIN [Concomitant]
     Active Substance: METFORMIN HYDROCHLORIDE
  9. PIOGLITAZONE. [Concomitant]
     Active Substance: PIOGLITAZONE
     Dates: end: 20110928
  10. AAS [Concomitant]
     Active Substance: ASPIRIN
  11. LIRAGLUTIDE [Concomitant]
     Active Substance: LIRAGLUTIDE
     Dates: start: 20141015
  12. LANTUS [Concomitant]
     Active Substance: INSULIN GLARGINE
     Dates: start: 20110928
  13. FORXIGA [Suspect]
     Active Substance: DAPAGLIFLOZIN
     Indication: TYPE 2 DIABETES MELLITUS
     Route: 048
     Dates: start: 20141015
  14. GLIMEPIRIDE. [Concomitant]
     Active Substance: GLIMEPIRIDE
     Dates: end: 20110928
  15. DIAMICRON MR [Concomitant]
     Active Substance: GLICLAZIDE
     Dates: start: 20110928
  16. LANTUS [Concomitant]
     Active Substance: INSULIN GLARGINE
     Dates: start: 20150828

REACTIONS (4)
  - Acute myocardial infarction [Recovered/Resolved]
  - Coronary artery occlusion [Unknown]
  - Enteritis infectious [Recovered/Resolved]
  - Oedema peripheral [Unknown]

NARRATIVE: CASE EVENT DATE: 20150828
